FAERS Safety Report 8518157-X (Version None)
Quarter: 2012Q3

REPORT INFORMATION
  Report Type: 
  Country: None (occurrence: None)
  Receive Date: 20120718
  Receipt Date: 20111021
  Transmission Date: 20120928
  Serious: Yes (Hospitalization, Other)
  Sender: FDA-Public Use
  Company Number: US-BRISTOL-MYERS SQUIBB COMPANY-16155129

PATIENT
  Sex: Male

DRUGS (13)
  1. COUMADIN [Suspect]
     Indication: HEART VALVE REPLACEMENT
     Route: 048
     Dates: start: 20100324
  2. SIMVASTATIN [Concomitant]
  3. INTEGRA PLUS [Concomitant]
  4. RENVELA [Concomitant]
  5. DILTIAZEM HCL [Concomitant]
  6. EPOGEN [Concomitant]
  7. LASIX [Concomitant]
  8. ALLOPURINOL [Concomitant]
  9. COLECALCIFEROL [Concomitant]
  10. ASCORBIC ACID [Concomitant]
  11. ACETYLSALICYLIC ACID SRT [Suspect]
     Route: 048
     Dates: start: 20110601
  12. ELIPTEN [Concomitant]
  13. MIRANAX [Concomitant]

REACTIONS (3)
  - PROCEDURAL HAEMORRHAGE [None]
  - GASTROINTESTINAL HAEMORRHAGE [None]
  - INTERNATIONAL NORMALISED RATIO INCREASED [None]
